FAERS Safety Report 20769510 (Version 1)
Quarter: 2022Q2

REPORT INFORMATION
  Report Type: Spontaneous
  Country: US (occurrence: None)
  Receive Date: 20220429
  Receipt Date: 20220429
  Transmission Date: 20220721
  Serious: Yes (Other)
  Sender: FDA-Public Use
  Company Number: None

PATIENT
  Age: 12 Week
  Sex: Female
  Weight: 4.95 kg

DRUGS (3)
  1. TC MAX [Suspect]
     Active Substance: CALCIUM CARBONATE
     Indication: Gastrooesophageal reflux disease
     Dosage: OTHER QUANTITY : 68 GRAM;?FREQUENCY : 3 TIMES A DAY;?
     Route: 048
     Dates: start: 20220410, end: 20220413
  2. OMEPRAZOLE [Suspect]
     Active Substance: OMEPRAZOLE
  3. OMEPRAZOLE [Concomitant]
     Active Substance: OMEPRAZOLE

REACTIONS (1)
  - Laryngospasm [None]

NARRATIVE: CASE EVENT DATE: 20220413
